FAERS Safety Report 8512042-5 (Version None)
Quarter: 2012Q3

REPORT INFORMATION
  Report Type: 
  Country: None (occurrence: None)
  Receive Date: 20120716
  Receipt Date: 20120709
  Transmission Date: 20120928
  Serious: Yes (Hospitalization)
  Sender: FDA-Public Use
  Company Number: NL-B.I. PHARMACEUTICALS,INC./RIDGEFIELD-2012-NL-00278NL

PATIENT
  Sex: Male
  Weight: 87 kg

DRUGS (5)
  1. ATENOLOL [Concomitant]
     Dosage: 75 MG
  2. LIPITOR [Concomitant]
     Dosage: 20 MG
  3. ENALAPRIL MALEATE [Concomitant]
     Dosage: 20 MG
  4. PRADAXA [Suspect]
     Indication: ATRIAL FIBRILLATION
     Dosage: 220 MG
  5. SPIRONOLACTONE [Concomitant]
     Dosage: 12.5 MG

REACTIONS (1)
  - TRANSIENT ISCHAEMIC ATTACK [None]
